FAERS Safety Report 18609824 (Version 2)
Quarter: 2020Q4

REPORT INFORMATION
  Report Type: Spontaneous
  Country: RU (occurrence: RU)
  Receive Date: 20201214
  Receipt Date: 20201231
  Transmission Date: 20210114
  Serious: Yes (Hospitalization, Other)
  Sender: FDA-Public Use
  Company Number: RU-LUPIN PHARMACEUTICALS INC.-2020-10257

PATIENT
  Age: 4 Year
  Sex: Male

DRUGS (27)
  1. DOXORUBICIN [Suspect]
     Active Substance: DOXORUBICIN
     Indication: RETROPERITONEAL NEOPLASM
  2. 13-CIS-RETINOIC ACID [Suspect]
     Active Substance: ISOTRETINOIN
     Indication: RETROPERITONEAL NEOPLASM
  3. TEMOZOLOMIDE. [Suspect]
     Active Substance: TEMOZOLOMIDE
     Indication: NEUROBLASTOMA
     Dosage: UNK (SECOND LINE THERAPY PART OF REINDUCTION THERAPY REGIMEN; RECEIVED 6 COURSES)
     Route: 065
  4. TOPOTECAN [Suspect]
     Active Substance: TOPOTECAN HYDROCHLORIDE
     Indication: RETROPERITONEAL NEOPLASM
  5. VINBLASTINE [Suspect]
     Active Substance: VINBLASTINE
     Indication: NEUROBLASTOMA
     Dosage: UNK (PART OF POST-CONSOLIDATION REGIMEN; LOW-DOSE)
     Route: 065
  6. VINBLASTINE [Suspect]
     Active Substance: VINBLASTINE
     Indication: RETROPERITONEAL NEOPLASM
  7. CARBOPLATIN. [Suspect]
     Active Substance: CARBOPLATIN
     Indication: NEUROBLASTOMA
     Dosage: UNK (PART OF N5 COURSE; RECEIVED 6 COURSES)
     Route: 065
  8. CARBOPLATIN. [Suspect]
     Active Substance: CARBOPLATIN
     Indication: RETROPERITONEAL NEOPLASM
  9. TREOSULFAN [Suspect]
     Active Substance: TREOSULFAN
     Indication: RETROPERITONEAL NEOPLASM
  10. MELPHALAN. [Suspect]
     Active Substance: MELPHALAN
     Indication: RETROPERITONEAL NEOPLASM
  11. CELECOXIB. [Suspect]
     Active Substance: CELECOXIB
     Indication: RETROPERITONEAL NEOPLASM
  12. DACARBAZINE. [Suspect]
     Active Substance: DACARBAZINE
     Indication: NEUROBLASTOMA
     Dosage: UNK (PART OF N6 COURSE; RECEIVED 6 COURSES)
     Route: 065
  13. CYCLOPHOSPHAMIDE. [Suspect]
     Active Substance: CYCLOPHOSPHAMIDE
     Dosage: UNK (PART OF N7 COURSE; RECEIVED 4 COURSES)
     Route: 065
  14. CYCLOPHOSPHAMIDE. [Suspect]
     Active Substance: CYCLOPHOSPHAMIDE
     Dosage: UNK (PART OF POST-CONSOLIDATION THERAPY)
     Route: 065
  15. TEMOZOLOMIDE. [Suspect]
     Active Substance: TEMOZOLOMIDE
     Indication: RETROPERITONEAL NEOPLASM
  16. TOPOTECAN [Suspect]
     Active Substance: TOPOTECAN HYDROCHLORIDE
     Indication: NEUROBLASTOMA
     Dosage: UNK (SECOND LINE THERAPY PART OF REINDUCTION THERAPY REGIMEN; RECEIVED 6 COURSES)
     Route: 065
  17. CELECOXIB. [Suspect]
     Active Substance: CELECOXIB
     Indication: NEUROBLASTOMA
     Dosage: UNK (PART OF POST-CONSOLIDATION REGIMEN)
     Route: 065
  18. VINCRISTINE [Suspect]
     Active Substance: VINCRISTINE
     Indication: NEUROBLASTOMA
     Dosage: UNK (PART OF N5/N6 COURSE; RECEIVED 6 COURSES)
     Route: 065
  19. MELPHALAN. [Suspect]
     Active Substance: MELPHALAN
     Indication: NEUROBLASTOMA
     Dosage: UNK (PART OF CONSOLIDATION THERAPY; HIGH-DOSE)
     Route: 065
  20. VINCRISTINE [Suspect]
     Active Substance: VINCRISTINE
     Indication: RETROPERITONEAL NEOPLASM
  21. DOXORUBICIN [Suspect]
     Active Substance: DOXORUBICIN
     Indication: NEUROBLASTOMA
     Dosage: UNK (PART OF N6 COURSE; RECEIVED 6 COURSES)
     Route: 065
  22. 13-CIS-RETINOIC ACID [Suspect]
     Active Substance: ISOTRETINOIN
     Indication: NEUROBLASTOMA
     Dosage: UNK (DIFFERENTIAL THERAPY ; 9 COURSES)
     Route: 065
  23. CYCLOPHOSPHAMIDE. [Suspect]
     Active Substance: CYCLOPHOSPHAMIDE
     Indication: NEUROBLASTOMA
     Dosage: UNK (DIFFERENTIAL THERAPY ; 9 COURSES)
     Route: 065
  24. ETOPOSIDE. [Suspect]
     Active Substance: ETOPOSIDE
     Indication: RETROPERITONEAL NEOPLASM
     Dosage: UNK (PART OF POST-CONSOLIDATION REGIMEN)
     Route: 065
  25. ETOPOSIDE. [Suspect]
     Active Substance: ETOPOSIDE
     Indication: NEUROBLASTOMA
     Dosage: UNK (PART OF N5 COURSE; RECEIVED 6 COURSES)
     Route: 065
  26. DACARBAZINE. [Suspect]
     Active Substance: DACARBAZINE
     Indication: RETROPERITONEAL NEOPLASM
  27. TREOSULFAN [Suspect]
     Active Substance: TREOSULFAN
     Indication: NEUROBLASTOMA
     Dosage: UNK (PART OF CONSOLIDATION THERAPY; HIGH-DOSE)
     Route: 065

REACTIONS (2)
  - Acute myeloid leukaemia [Recovering/Resolving]
  - Septic shock [Recovering/Resolving]
